FAERS Safety Report 16732068 (Version 1)
Quarter: 2019Q3

REPORT INFORMATION
  Report Type: Spontaneous
  Country: CA (occurrence: CA)
  Receive Date: 20190822
  Receipt Date: 20190822
  Transmission Date: 20191005
  Serious: Yes (Hospitalization)
  Sender: FDA-Public Use
  Company Number: CA-BAUSCH-BL-2019-023069

PATIENT
  Age: 36 Year
  Sex: Female

DRUGS (16)
  1. DICLOFENAC [Concomitant]
     Active Substance: DICLOFENAC
     Indication: PRODUCT USED FOR UNKNOWN INDICATION
  2. FLUTICASONE. [Concomitant]
     Active Substance: FLUTICASONE
     Indication: ASTHMA
     Dosage: 3 DAYS PER WEEK
  3. FLUTICASONE. [Concomitant]
     Active Substance: FLUTICASONE
     Indication: RHINITIS ALLERGIC
  4. SALBUTAMOL [Suspect]
     Active Substance: ALBUTEROL
     Indication: RHINITIS ALLERGIC
     Dosage: NEBULIZATION
  5. SALBUTAMOL [Suspect]
     Active Substance: ALBUTEROL
     Dosage: NEBULIZATION, EVERY 20 MIN
  6. ACETAMINOPHEN. [Concomitant]
     Active Substance: ACETAMINOPHEN
     Indication: PRODUCT USED FOR UNKNOWN INDICATION
     Dosage: AS NEEDED
  7. SALBUTAMOL [Suspect]
     Active Substance: ALBUTEROL
     Dosage: NEBULIZATION, 2.5 MG AND 5 MG AT 06:00
  8. QUETIAPINE. [Concomitant]
     Active Substance: QUETIAPINE
     Indication: PRODUCT USED FOR UNKNOWN INDICATION
     Dosage: 75 MG AS NEEDED AT NIGHT
  9. IPRATROPIUM BROMIDE. [Concomitant]
     Active Substance: IPRATROPIUM BROMIDE
     Indication: ASTHMA
     Dosage: VIA NEBULIZATION
  10. SALBUTAMOL [Suspect]
     Active Substance: ALBUTEROL
     Indication: RHINITIS ALLERGIC
  11. SALBUTAMOL [Suspect]
     Active Substance: ALBUTEROL
     Dosage: NEBULIZATION,  ADDITIONAL DOSES, TOTAL OF 22.5 MG
  12. PREDNISONE. [Concomitant]
     Active Substance: PREDNISONE
     Indication: PRODUCT USED FOR UNKNOWN INDICATION
     Route: 048
  13. IPRATROPIUM BROMIDE. [Concomitant]
     Active Substance: IPRATROPIUM BROMIDE
     Dosage: VIA NEBULIZATION
  14. SALBUTAMOL [Suspect]
     Active Substance: ALBUTEROL
     Indication: ASTHMA
     Dosage: NEBULIZATION
  15. SALBUTAMOL [Suspect]
     Active Substance: ALBUTEROL
     Indication: ASTHMA
     Dosage: METERED DOSE PUFFS THREE TO FOUR PUFFS FOUR TIMES PER DAY
  16. IPRATROPIUM BROMIDE. [Concomitant]
     Active Substance: IPRATROPIUM BROMIDE
     Dosage: VIA NEBULIZATION ADDITIONAL DOSES

REACTIONS (1)
  - Lactic acidosis [Recovered/Resolved]
